FAERS Safety Report 19176704 (Version 2)
Quarter: 2021Q2

REPORT INFORMATION
  Report Type: Spontaneous
  Country: GB (occurrence: GB)
  Receive Date: 20210424
  Receipt Date: 20210430
  Transmission Date: 20210717
  Serious: Yes (Disabling, Other)
  Sender: FDA-Public Use
  Company Number: GB-TEVA-2021-GB-1903277

PATIENT
  Age: 23 Year
  Sex: Female
  Weight: 66.22 kg

DRUGS (6)
  1. FEXOFENADINE HYDROCHLORIDE. [Concomitant]
     Active Substance: FEXOFENADINE HYDROCHLORIDE
     Indication: ILL-DEFINED DISORDER
  2. ZINC. [Concomitant]
     Active Substance: ZINC
     Indication: ILL-DEFINED DISORDER
  3. OMEGA?3 FISH OIL [Concomitant]
     Active Substance: FISH OIL\OMEGA-3 FATTY ACIDS
     Indication: ILL-DEFINED DISORDER
  4. BETNOVATE [Suspect]
     Active Substance: BETAMETHASONE
     Indication: ECZEMA
     Route: 061
     Dates: end: 2011
  5. HYDROCORTISONE. [Suspect]
     Active Substance: HYDROCORTISONE
     Indication: ECZEMA
     Dosage: 2% + 0.5%
     Route: 061
     Dates: end: 20200106
  6. MIRTAZAPIN [Concomitant]
     Active Substance: MIRTAZAPINE
     Indication: ILL-DEFINED DISORDER

REACTIONS (12)
  - Psychiatric symptom [Not Recovered/Not Resolved]
  - Blood cortisol [Not Recovered/Not Resolved]
  - Feeling of body temperature change [Recovered/Resolved with Sequelae]
  - Insomnia [Recovering/Resolving]
  - Medication error [Unknown]
  - Erythema [Unknown]
  - Anxiety [Not Recovered/Not Resolved]
  - Skin exfoliation [Not Recovered/Not Resolved]
  - Asthenia [Recovering/Resolving]
  - Disturbance in attention [Recovering/Resolving]
  - Steroid withdrawal syndrome [Not Recovered/Not Resolved]
  - Skin tightness [Unknown]
